FAERS Safety Report 21404838 (Version 1)
Quarter: 2022Q3

REPORT INFORMATION
  Report Type: Spontaneous
  Country: US (occurrence: None)
  Receive Date: 20220930
  Receipt Date: 20220930
  Transmission Date: 20221027
  Serious: No
  Sender: FDA-Public Use
  Company Number: None

PATIENT
  Age: 36 Year
  Sex: Male
  Weight: 80 kg

DRUGS (1)
  1. CARBAMAZEPINE [Suspect]
     Active Substance: CARBAMAZEPINE
     Indication: Bipolar I disorder
     Dosage: 1 TAB EVERY DAY PO
     Route: 048
     Dates: start: 20220325, end: 20220513

REACTIONS (1)
  - Rash [None]

NARRATIVE: CASE EVENT DATE: 20220513
